FAERS Safety Report 9148417 (Version 1)
Quarter: 2013Q1

REPORT INFORMATION
  Report Type: Spontaneous
  Country: US (occurrence: None)
  Receive Date: 20130228
  Receipt Date: 20130228
  Transmission Date: 20140127
  Serious: Yes (Life-Threatening, Hospitalization)
  Sender: FDA-Public Use
  Company Number: None

PATIENT
  Age: 24 Year
  Sex: Female
  Weight: 76.2 kg

DRUGS (1)
  1. ISOVUE 300 [Suspect]
     Indication: SCAN WITH CONTRAST
     Dosage: UNKNOWN  ONCE  IV BOLUS
     Route: 040
     Dates: start: 20130107, end: 20130107

REACTIONS (3)
  - Cough [None]
  - Rash [None]
  - Dyspnoea [None]
